FAERS Safety Report 4519766-5 (Version None)
Quarter: 2004Q4

REPORT INFORMATION
  Report Type: 
  Country: None (occurrence: None)
  Receive Date: 20041207
  Receipt Date: 20041129
  Transmission Date: 20050328
  Serious: Yes (Hospitalization)
  Sender: FDA-Public Use
  Company Number: PHRM2004FR03469

PATIENT
  Age: 15 Year
  Sex: Male

DRUGS (2)
  1. KEPPRA [Suspect]
     Indication: PARTIAL SEIZURES
     Dosage: 1 G, BID
     Route: 048
  2. TRILEPTAL [Suspect]
     Indication: PARTIAL SEIZURES
     Dosage: 600 MG MORNING AND EVENING, 300 MG NOON
     Route: 048

REACTIONS (13)
  - C-REACTIVE PROTEIN INCREASED [None]
  - CHEST PAIN [None]
  - CYTOLYTIC HEPATITIS [None]
  - DYSURIA [None]
  - FEELING HOT [None]
  - GAMMA-GLUTAMYLTRANSFERASE INCREASED [None]
  - HEADACHE [None]
  - HYPERTHERMIA [None]
  - LEUKOPENIA [None]
  - RASH MACULO-PAPULAR [None]
  - THROMBOCYTOPENIA [None]
  - TRANSAMINASES INCREASED [None]
  - VERTIGO POSITIONAL [None]
